FAERS Safety Report 25071180 (Version 1)
Quarter: 2025Q1

REPORT INFORMATION
  Report Type: Report from Study
  Country: CA (occurrence: CA)
  Receive Date: 20250312
  Receipt Date: 20250312
  Transmission Date: 20250409
  Serious: Yes (Other)
  Sender: TAKEDA
  Company Number: CA-TAKEDA-2024TUS125286

PATIENT
  Sex: Female

DRUGS (3)
  1. VEDOLIZUMAB [Suspect]
     Active Substance: VEDOLIZUMAB
     Indication: Colitis ulcerative
  2. VEDOLIZUMAB [Suspect]
     Active Substance: VEDOLIZUMAB
  3. PREDNISONE [Concomitant]
     Active Substance: PREDNISONE

REACTIONS (9)
  - Colitis ulcerative [Unknown]
  - Anal haemorrhage [Unknown]
  - Diarrhoea [Unknown]
  - Anosmia [Unknown]
  - Suspected COVID-19 [Unknown]
  - Platelet count decreased [Unknown]
  - Insomnia [Unknown]
  - Abdominal pain [Unknown]
  - Nasal congestion [Unknown]
